FAERS Safety Report 16776895 (Version 1)
Quarter: 2019Q4

REPORT INFORMATION
  Report Type: Spontaneous
  Country: US (occurrence: US)
  Receive Date: 20190905
  Receipt Date: 20190905
  Transmission Date: 20200122
  Serious: Yes (Other)
  Sender: FDA-Public Use
  Company Number: None

PATIENT
  Age: 72 Year
  Sex: Male
  Weight: 82.8 kg

DRUGS (2)
  1. NILUTAMIDE. [Suspect]
     Active Substance: NILUTAMIDE
     Indication: PROSTATE CANCER
     Route: 048
     Dates: start: 20190606, end: 20190905
  2. NILUTAMIDE. [Suspect]
     Active Substance: NILUTAMIDE
     Indication: BONE CANCER
     Route: 048
     Dates: start: 20190606, end: 20190905

REACTIONS (1)
  - Disease progression [None]

NARRATIVE: CASE EVENT DATE: 20190904
